FAERS Safety Report 8817146 (Version 1)
Quarter: 2012Q4

REPORT INFORMATION
  Report Type: Spontaneous
  Country: US (occurrence: None)
  Receive Date: 20121003
  Receipt Date: 20121003
  Transmission Date: 20130627
  Serious: Yes (Hospitalization, Other)
  Sender: FDA-Public Use
  Company Number: None

PATIENT
  Age: 70 Year
  Sex: Male
  Weight: 74.84 kg

DRUGS (3)
  1. MYLAN [Suspect]
     Dosage: 30 mg 2 in 24 hours po
     Route: 048
     Dates: start: 2008, end: 20120928
  2. PERCOCET 5/325 - 3 IN 24 HRS [Concomitant]
  3. BACLOFEN 10 MG TAB 2 IN 24 HRS [Concomitant]

REACTIONS (5)
  - Product label issue [None]
  - Drug effect decreased [None]
  - Crying [None]
  - Suicidal ideation [None]
  - Anger [None]
